FAERS Safety Report 7457130-X (Version None)
Quarter: 2011Q1

REPORT INFORMATION
  Report Type: 
  Country: None (occurrence: None)
  Receive Date: 20110302
  Receipt Date: 20101213
  Transmission Date: 20110831
  Serious: No
  Sender: FDA-Public Use
  Company Number: 023768

PATIENT

DRUGS (1)
  1. CIMZIA [Suspect]
     Dosage: (400 MG OR 200 MG PFS SUBCUTANEOUS)
     Route: 058

REACTIONS (1)
  - WRONG TECHNIQUE IN DRUG USAGE PROCESS [None]
